FAERS Safety Report 9008887 (Version 1)
Quarter: 2013Q1

REPORT INFORMATION
  Report Type: Report from Study
  Country: US (occurrence: US)
  Receive Date: 20130111
  Receipt Date: 20130111
  Transmission Date: 20140127
  Serious: Yes (Hospitalization)
  Sender: FDA-Public Use
  Company Number: US-ABBOTT-13P-163-1033195-00

PATIENT
  Sex: Male
  Weight: 75.82 kg

DRUGS (5)
  1. HUMIRA [Suspect]
     Indication: PSORIASIS
     Dates: end: 201208
  2. ALLOPURINOL (NON-ABBOTT) [Concomitant]
     Indication: GOUT
  3. PREDNISONE [Concomitant]
     Indication: PROPHYLAXIS AGAINST TRANSPLANT REJECTION
  4. PROGRAF [Concomitant]
     Indication: PROPHYLAXIS AGAINST TRANSPLANT REJECTION
  5. CELLCEPT [Concomitant]
     Indication: PROPHYLAXIS AGAINST TRANSPLANT REJECTION

REACTIONS (4)
  - Glomerulonephritis [Recovered/Resolved]
  - Nausea [Recovered/Resolved]
  - Dyspnoea [Recovered/Resolved]
  - Coronary artery stenosis [Recovered/Resolved]
